FAERS Safety Report 20674770 (Version 1)
Quarter: 2022Q2

REPORT INFORMATION
  Report Type: Spontaneous
  Country: IN (occurrence: IN)
  Receive Date: 20220405
  Receipt Date: 20220405
  Transmission Date: 20220721
  Serious: Yes (Other)
  Sender: FDA-Public Use
  Company Number: IN-PFIZER INC-2019437979

PATIENT
  Age: 70 Year
  Sex: Male

DRUGS (2)
  1. CRIZOTINIB [Suspect]
     Active Substance: CRIZOTINIB
     Indication: Non-small cell lung cancer metastatic
     Dosage: 250 MG, 2X/DAY
     Route: 048
     Dates: start: 20140128, end: 20160822
  2. CRIZOTINIB [Suspect]
     Active Substance: CRIZOTINIB
     Dosage: 250 MG, 2X/DAY (12 HOURLY FOR 6 MONTHS)
     Route: 048
     Dates: start: 20201016

REACTIONS (7)
  - Demyelination [Unknown]
  - Neoplasm progression [Unknown]
  - Cough [Unknown]
  - Pyrexia [Unknown]
  - Weight increased [Unknown]
  - Dizziness [Unknown]
  - Disease recurrence [Unknown]

NARRATIVE: CASE EVENT DATE: 20140307
